FAERS Safety Report 13679616 (Version 3)
Quarter: 2017Q3

REPORT INFORMATION
  Report Type: Spontaneous
  Country: US (occurrence: US)
  Receive Date: 20170622
  Receipt Date: 20170912
  Transmission Date: 20171127
  Serious: Yes (Hospitalization, Other)
  Sender: FDA-Public Use
  Company Number: US-LUNDBECK-DKLU2032879

PATIENT
  Age: 80 Year
  Sex: Female
  Weight: 53 kg

DRUGS (11)
  1. NORTHERA [Suspect]
     Active Substance: DROXIDOPA
     Indication: SYNCOPE
     Route: 048
     Dates: start: 20170512
  2. LEVOTHYROXINE SODIUM. [Concomitant]
     Active Substance: LEVOTHYROXINE SODIUM
     Indication: PRODUCT USED FOR UNKNOWN INDICATION
     Route: 048
  3. VITAMIN D [Concomitant]
     Active Substance: CHOLECALCIFEROL
     Indication: PRODUCT USED FOR UNKNOWN INDICATION
     Route: 048
  4. CLARITIN [Concomitant]
     Active Substance: LORATADINE
     Indication: PRODUCT USED FOR UNKNOWN INDICATION
     Route: 065
  5. HM CALCIUM-VITAMIN D [Concomitant]
     Indication: PRODUCT USED FOR UNKNOWN INDICATION
     Route: 065
  6. CITALOPRAM HYDROBROMIDE. [Concomitant]
     Active Substance: CITALOPRAM HYDROBROMIDE
     Indication: PRODUCT USED FOR UNKNOWN INDICATION
     Route: 065
  7. NEXIUM [Concomitant]
     Active Substance: ESOMEPRAZOLE MAGNESIUM
     Indication: PRODUCT USED FOR UNKNOWN INDICATION
     Route: 065
  8. FLECAINIDE ACETATE. [Concomitant]
     Active Substance: FLECAINIDE ACETATE
     Indication: PRODUCT USED FOR UNKNOWN INDICATION
     Route: 065
  9. NORTHERA [Suspect]
     Active Substance: DROXIDOPA
     Route: 048
  10. MELOXICAM. [Concomitant]
     Active Substance: MELOXICAM
     Indication: PRODUCT USED FOR UNKNOWN INDICATION
     Route: 048
  11. GLUCOSAMINE-CHONDROITIN [Concomitant]
     Active Substance: CHONDROITIN SULFATE (BOVINE)\GLUCOSAMINE SULFATE
     Indication: PRODUCT USED FOR UNKNOWN INDICATION
     Route: 048

REACTIONS (17)
  - Polyuria [Unknown]
  - Fall [Unknown]
  - Headache [Unknown]
  - Blood pressure increased [Unknown]
  - Hip fracture [Not Recovered/Not Resolved]
  - Dry skin [Unknown]
  - Arthritis [Unknown]
  - Hyperhidrosis [Unknown]
  - Gait disturbance [Unknown]
  - Fatigue [Unknown]
  - Blindness [Unknown]
  - Dizziness [Unknown]
  - Wrist fracture [Not Recovered/Not Resolved]
  - Polydipsia [Unknown]
  - Loss of consciousness [Not Recovered/Not Resolved]
  - Sleep disorder [Unknown]
  - Hypoacusis [Unknown]

NARRATIVE: CASE EVENT DATE: 201707
